FAERS Safety Report 9239774 (Version 3)
Quarter: 2013Q3

REPORT INFORMATION
  Report Type: Report from Study
  Country: JP (occurrence: JP)
  Receive Date: 20130418
  Receipt Date: 20130811
  Transmission Date: 20140515
  Serious: Yes (Death)
  Sender: FDA-Public Use
  Company Number: JP-CUBIST PHARMACEUTICALS, INC.-2013CBST000279

PATIENT
  Sex: 0

DRUGS (6)
  1. CUBICIN [Suspect]
     Indication: STAPHYLOCOCCAL INFECTION
     Dosage: 6 MG/KG, ONCE DAILY
     Route: 041
     Dates: start: 20121225, end: 20130108
  2. CUBICIN [Suspect]
     Indication: SEPSIS
  3. CUBICIN [Suspect]
     Indication: OFF LABEL USE
  4. TIENAM [Concomitant]
     Indication: FEBRILE NEUTROPENIA
     Dosage: 0.5 G, TID
     Route: 041
     Dates: start: 20121217, end: 20121227
  5. MEROPEN                            /01250501/ [Concomitant]
     Indication: FEBRILE NEUTROPENIA
     Dosage: 0.5 G, TID
     Route: 051
     Dates: start: 20121228, end: 20130108
  6. AMBISOME [Concomitant]
     Indication: BRONCHOPULMONARY ASPERGILLOSIS
     Dosage: 250 MG, ONCE
     Route: 051
     Dates: start: 20121218, end: 20130108

REACTIONS (2)
  - Acute myeloid leukaemia [Fatal]
  - Renal impairment [Not Recovered/Not Resolved]
